FAERS Safety Report 14963763 (Version 5)
Quarter: 2019Q3

REPORT INFORMATION
  Report Type: Spontaneous
  Country: US (occurrence: US)
  Receive Date: 20180601
  Receipt Date: 20190723
  Transmission Date: 20191004
  Serious: Yes (Other)
  Sender: FDA-Public Use
  Company Number: US-IMPAX LABORATORIES, INC-2018-IPXL-01847

PATIENT
  Sex: Female

DRUGS (1)
  1. ADRENACLICK [Suspect]
     Active Substance: EPINEPHRINE
     Indication: ANAPHYLACTIC REACTION
     Dosage: 0.3 MG, (0.3 ML) UNK
     Route: 065
     Dates: start: 20180514

REACTIONS (3)
  - Needle issue [Unknown]
  - Drug ineffective [Unknown]
  - Device failure [Unknown]

NARRATIVE: CASE EVENT DATE: 20180514
